FAERS Safety Report 24214030 (Version 1)
Quarter: 2024Q3

REPORT INFORMATION
  Report Type: Spontaneous
  Country: US (occurrence: None)
  Receive Date: 20240815
  Receipt Date: 20240815
  Transmission Date: 20241017
  Serious: Yes (Hospitalization)
  Sender: Public
  Company Number: None

PATIENT
  Age: 78 Year
  Sex: Female

DRUGS (2)
  1. OCTREOTIDE [Suspect]
     Active Substance: OCTREOTIDE\OCTREOTIDE ACETATE
     Indication: Angiodysplasia
     Dosage: 1 ML EVERY 12 HOURS SUBCUTANEOUS?
     Route: 058
     Dates: start: 202407
  2. OCTREOTIDE [Suspect]
     Active Substance: OCTREOTIDE\OCTREOTIDE ACETATE
     Indication: Small intestinal haemorrhage

REACTIONS (4)
  - Diarrhoea [None]
  - Internal haemorrhage [None]
  - Haemoglobin decreased [None]
  - Alopecia [None]

NARRATIVE: CASE EVENT DATE: 20240801
